FAERS Safety Report 5199463-6 (Version None)
Quarter: 2006Q4

REPORT INFORMATION
  Report Type: 
  Country: None (occurrence: None)
  Receive Date: 20061229
  Receipt Date: 20061218
  Transmission Date: 20070319
  Serious: Yes (Other)
  Sender: FDA-Public Use
  Company Number: GXBR2006US02168

PATIENT
  Age: 86 Year
  Sex: Female
  Weight: 54.4 kg

DRUGS (4)
  1. ATENOLOL [Suspect]
     Indication: HYPERTENSION
     Dosage: 25 MG, QD; ORAL; ORAL
     Route: 048
     Dates: start: 20061105, end: 20061115
  2. ATENOLOL [Suspect]
     Indication: HYPERTENSION
     Dosage: 25 MG, QD; ORAL; ORAL
     Route: 048
     Dates: start: 20061217
  3. ACTONEL [Concomitant]
  4. MULTIVITAMINS (ASCORBIC ACID, ERGOCALCIFEROL, FOLIC ACID, NICOTINAMIDE [Concomitant]

REACTIONS (1)
  - MACULAR DEGENERATION [None]
